FAERS Safety Report 7909191-9 (Version None)
Quarter: 2011Q4

REPORT INFORMATION
  Report Type: 
  Country: None (occurrence: None)
  Receive Date: 20111111
  Receipt Date: 20110707
  Transmission Date: 20120403
  Serious: No
  Sender: FDA-Public Use
  Company Number: US-GLAXOSMITHKLINE-A0935350A

PATIENT
  Age: 53 Year
  Sex: Female

DRUGS (4)
  1. VITAMIN TAB [Concomitant]
  2. MICARDIS [Concomitant]
  3. CARVEDILOL [Suspect]
     Indication: CARDIOMYOPATHY
     Dosage: 25MG TWICE PER DAY
     Route: 048
     Dates: start: 20090901, end: 20091101
  4. LEVOTHYROXINE SODIUM [Concomitant]

REACTIONS (3)
  - THINKING ABNORMAL [None]
  - ASTHENIA [None]
  - DRUG INEFFECTIVE [None]
